FAERS Safety Report 20314785 (Version 1)
Quarter: 2022Q1

REPORT INFORMATION
  Report Type: Spontaneous
  Country: US (occurrence: US)
  Receive Date: 20220110
  Receipt Date: 20220110
  Transmission Date: 20220423
  Serious: No
  Sender: FDA-Public Use
  Company Number: US-BIOVITRUM-2022US00169

PATIENT
  Sex: Male

DRUGS (4)
  1. SYNAGIS [Suspect]
     Active Substance: PALIVIZUMAB
     Indication: Muscular weakness
     Dosage: (50MG/0.5ML)?(100MG/ML)
     Route: 030
     Dates: start: 20210911
  2. SYNAGIS [Suspect]
     Active Substance: PALIVIZUMAB
     Indication: Premature baby
  3. SYNAGIS [Suspect]
     Active Substance: PALIVIZUMAB
     Indication: Chronic respiratory disease
  4. SYNAGIS [Suspect]
     Active Substance: PALIVIZUMAB
     Indication: Feeding disorder

REACTIONS (1)
  - Respiratory syncytial virus infection [Unknown]
